FAERS Safety Report 25985975 (Version 1)
Quarter: 2025Q4

REPORT INFORMATION
  Report Type: Spontaneous
  Country: US (occurrence: US)
  Receive Date: 20251031
  Receipt Date: 20251031
  Transmission Date: 20260118
  Serious: No
  Sender: AXSOME THERAPEUTICS
  Company Number: US-AXS-AXS202510-001796

PATIENT
  Age: 78 Year
  Sex: Female
  Weight: 68.49 kg

DRUGS (6)
  1. SUNOSI [Suspect]
     Active Substance: SOLRIAMFETOL
     Indication: Somnolence
     Dosage: TAKES SUNOSI AROUND 9AM.
     Route: 048
     Dates: start: 20250927
  2. LEVOTHYROXINE [Concomitant]
     Active Substance: LEVOTHYROXINE
     Indication: Hypothyroidism
     Route: 065
  3. TRAMADOL [Concomitant]
     Active Substance: TRAMADOL
     Indication: Restless legs syndrome
     Dosage: PRN QHS
     Route: 065
  4. CLONAZEPAM [Concomitant]
     Active Substance: CLONAZEPAM
     Indication: Restless legs syndrome
     Dosage: PRN QHS
     Route: 065
  5. CALCIUM CITRATE [Concomitant]
     Active Substance: CALCIUM CITRATE
     Indication: Bone disorder
     Route: 065
  6. ROSUVASTATIN [Concomitant]
     Active Substance: ROSUVASTATIN
     Indication: Product used for unknown indication
     Route: 065

REACTIONS (3)
  - Blood pressure fluctuation [Recovered/Resolved]
  - Heart rate irregular [Recovered/Resolved]
  - Loss of therapeutic response [Not Recovered/Not Resolved]
